FAERS Safety Report 25016607 (Version 2)
Quarter: 2025Q1

REPORT INFORMATION
  Report Type: Spontaneous
  Country: SK (occurrence: SK)
  Receive Date: 20250227
  Receipt Date: 20250312
  Transmission Date: 20250409
  Serious: Yes (Hospitalization, Other)
  Sender: CELLTRION
  Company Number: SK-NOVPHSZ-PHHY2018SK080314

PATIENT

DRUGS (13)
  1. INFLIXIMAB [Suspect]
     Active Substance: INFLIXIMAB
     Indication: Psoriasis
     Route: 065
  2. INFLIXIMAB [Suspect]
     Active Substance: INFLIXIMAB
     Route: 042
     Dates: start: 200701
  3. CYCLOSPORINE [Suspect]
     Active Substance: CYCLOSPORINE
     Indication: Psoriasis
     Route: 065
  4. CYCLOSPORINE [Suspect]
     Active Substance: CYCLOSPORINE
     Route: 065
  5. METHOTREXATE [Suspect]
     Active Substance: METHOTREXATE
     Indication: Psoriasis
     Dosage: 7.5 MG, WEEKLY
     Route: 065
  6. METHOTREXATE [Suspect]
     Active Substance: METHOTREXATE
     Route: 065
  7. METHOTREXATE [Suspect]
     Active Substance: METHOTREXATE
     Dosage: 5 MG, QW
     Route: 065
  8. METHOTREXATE [Suspect]
     Active Substance: METHOTREXATE
     Dosage: 7 MG, QW
     Route: 065
  9. METHYLPREDNISOLONE [Suspect]
     Active Substance: METHYLPREDNISOLONE
     Indication: Psoriasis
     Route: 048
     Dates: start: 2013
  10. ACITRETIN [Suspect]
     Active Substance: ACITRETIN
     Indication: Psoriasis
     Route: 065
  11. ETANERCEPT [Suspect]
     Active Substance: ETANERCEPT
     Indication: Psoriasis
     Route: 065
     Dates: start: 200607
  12. ETANERCEPT [Suspect]
     Active Substance: ETANERCEPT
     Route: 065
     Dates: start: 200805
  13. EFALIZUMAB [Suspect]
     Active Substance: EFALIZUMAB
     Indication: Psoriasis
     Route: 065
     Dates: start: 200607

REACTIONS (13)
  - Progressive multifocal leukoencephalopathy [Unknown]
  - Condition aggravated [Unknown]
  - Cardiomyopathy [Unknown]
  - Hydrothorax [Unknown]
  - Mobility decreased [Unknown]
  - Renal failure [Not Recovered/Not Resolved]
  - Erythrodermic psoriasis [Unknown]
  - Cardiac failure acute [Unknown]
  - Body temperature increased [Unknown]
  - Cachexia [Unknown]
  - Asthenia [Unknown]
  - Dyspnoea [Unknown]
  - Drug ineffective [Unknown]

NARRATIVE: CASE EVENT DATE: 20070101
